FAERS Safety Report 8302951-4 (Version None)
Quarter: 2012Q2

REPORT INFORMATION
  Report Type: 
  Country: None (occurrence: None)
  Receive Date: 20120420
  Receipt Date: 20120227
  Transmission Date: 20120825
  Serious: Yes (Hospitalization, Other)
  Sender: FDA-Public Use
  Company Number: PHFR2012IE002424

PATIENT
  Sex: Male

DRUGS (4)
  1. CLOZARIL [Suspect]
     Indication: SCHIZOPHRENIA
     Dosage: 200 MG, DAILY
     Route: 048
     Dates: start: 20120203
  2. OLANZAPINE [Concomitant]
     Indication: SCHIZOPHRENIA
     Dosage: 200 MG, DAILY
     Route: 048
     Dates: start: 20020101
  3. BETA BLOCKING AGENTS [Concomitant]
  4. ACE INHIBITORS [Concomitant]

REACTIONS (7)
  - HAEMOGLOBIN INCREASED [None]
  - PNEUMONIA [None]
  - TACHYCARDIA [None]
  - PLATELET COUNT DECREASED [None]
  - CARDIAC FAILURE [None]
  - CARDIOMYOPATHY [None]
  - EJECTION FRACTION DECREASED [None]
